FAERS Safety Report 7255528-6 (Version None)
Quarter: 2011Q1

REPORT INFORMATION
  Report Type: 
  Country: None (occurrence: None)
  Receive Date: 20110129
  Receipt Date: 20100416
  Transmission Date: 20110831
  Serious: Yes (Other)
  Sender: FDA-Public Use
  Company Number: US-ABBOTT-10P-163-0636961-00

PATIENT
  Sex: Female
  Weight: 90.8 kg

DRUGS (6)
  1. PREMARIN [Concomitant]
     Indication: MENOPAUSE
  2. PREMARIN [Concomitant]
     Indication: HYSTERECTOMY
  3. HUMIRA [Suspect]
     Indication: PSORIATIC ARTHROPATHY
     Dates: start: 20050101, end: 20071201
  4. HUMIRA [Suspect]
     Dates: start: 20090101
  5. HUMIRA [Suspect]
     Indication: PSORIASIS
     Dates: start: 20050101
  6. LEXAPRO [Concomitant]
     Indication: ANXIETY

REACTIONS (4)
  - PNEUMONIA [None]
  - STAPHYLOCOCCAL INFECTION [None]
  - PSORIASIS [None]
  - PSORIATIC ARTHROPATHY [None]
